FAERS Safety Report 13098747 (Version 3)
Quarter: 2017Q1

REPORT INFORMATION
  Report Type: Report from Study
  Country: CR (occurrence: CR)
  Receive Date: 20170109
  Receipt Date: 20170127
  Transmission Date: 20170428
  Serious: Yes (Other)
  Sender: FDA-Public Use
  Company Number: PHHY2017CR002142

PATIENT
  Age: 70 Year
  Sex: Female
  Weight: 56 kg

DRUGS (3)
  1. SANDOSTATIN LAR DEPOT [Suspect]
     Active Substance: OCTREOTIDE ACETATE
     Indication: NEUROENDOCRINE TUMOUR
     Dosage: 20 MG, QMO
     Route: 030
     Dates: start: 199902
  2. IRBESARTAN. [Concomitant]
     Active Substance: IRBESARTAN
     Indication: PRODUCT USED FOR UNKNOWN INDICATION
     Dosage: 150 MG, QD
     Route: 048
  3. SANDOSTATIN LAR DEPOT [Suspect]
     Active Substance: OCTREOTIDE ACETATE
     Dosage: 30 MG, QMO
     Route: 030
     Dates: start: 201611

REACTIONS (12)
  - Bone disorder [Unknown]
  - Obstruction [Recovering/Resolving]
  - Cholelithiasis [Unknown]
  - Asthenia [Unknown]
  - Malaise [Unknown]
  - Blood bilirubin increased [Unknown]
  - Diarrhoea [Not Recovered/Not Resolved]
  - Metastases to spine [Unknown]
  - Hypertension [Unknown]
  - Weight decreased [Unknown]
  - Gallbladder obstruction [Unknown]
  - Malignant neoplasm progression [Unknown]
